FAERS Safety Report 17767255 (Version 2)
Quarter: 2020Q3

REPORT INFORMATION
  Report Type: Report from Study
  Country: US (occurrence: US)
  Receive Date: 20200511
  Receipt Date: 20200828
  Transmission Date: 20201102
  Serious: Yes (Other)
  Sender: FDA-Public Use
  Company Number: US-ELI_LILLY_AND_COMPANY-US201910016100

PATIENT
  Age: 71 Year
  Sex: Female

DRUGS (2)
  1. FORTEO [Suspect]
     Active Substance: TERIPARATIDE
     Dosage: 20 UG, DAILY
     Route: 058
  2. FORTEO [Suspect]
     Active Substance: TERIPARATIDE
     Indication: PRODUCT USED FOR UNKNOWN INDICATION
     Dosage: 20 UG, DAILY
     Route: 058
     Dates: start: 20181126

REACTIONS (5)
  - Blood calcium increased [Unknown]
  - Nephrolithiasis [Recovered/Resolved]
  - Blood urine present [Recovering/Resolving]
  - Urinary tract obstruction [Recovered/Resolved]
  - Ureteric dilatation [Unknown]

NARRATIVE: CASE EVENT DATE: 201910
